FAERS Safety Report 4907304-4 (Version None)
Quarter: 2006Q1

REPORT INFORMATION
  Report Type: 
  Country: None (occurrence: None)
  Receive Date: 20060208
  Receipt Date: 20060208
  Transmission Date: 20060701
  Serious: Yes (Hospitalization)
  Sender: FDA-Public Use
  Company Number: None

PATIENT
  Age: 58 Year
  Sex: Male
  Weight: 96.1626 kg

DRUGS (7)
  1. FLUDARABINE PHOSPHATE [Suspect]
     Indication: NON-HODGKIN'S LYMPHOMA
     Dosage: 55 MG IV DAILY X 5 DAYS
     Dates: start: 20050912, end: 20050916
  2. RITUXIMAB [Suspect]
     Indication: NON-HODGKIN'S LYMPHOMA
     Dosage: 800 MG IV ONCE/CYCLE
     Route: 042
     Dates: start: 20050912
  3. . [Concomitant]
  4. MVI/MINERAL [Concomitant]
  5. SENNA [Concomitant]
  6. PROCHLORPERAZINE [Concomitant]
  7. FILGRASTIM [Concomitant]

REACTIONS (5)
  - BODY TEMPERATURE INCREASED [None]
  - FATIGUE [None]
  - OEDEMA PERIPHERAL [None]
  - PANCYTOPENIA [None]
  - PRODUCTIVE COUGH [None]
